FAERS Safety Report 7107361-3 (Version None)
Quarter: 2010Q4

REPORT INFORMATION
  Report Type: 
  Country: None (occurrence: None)
  Receive Date: 20101111
  Receipt Date: 20101111
  Transmission Date: 20110411
  Serious: No
  Sender: FDA-Public Use
  Company Number: None

PATIENT
  Sex: Male
  Weight: 108.8633 kg

DRUGS (4)
  1. VENLAFAXINE [Suspect]
     Indication: ANXIETY
     Dosage: 300 MG 1 PO
     Route: 048
  2. VENLAFAXINE [Suspect]
     Indication: BIPOLAR DISORDER
     Dosage: 300 MG 1 PO
     Route: 048
  3. VENLAFAXINE [Suspect]
     Indication: DEPRESSION
     Dosage: 300 MG 1 PO
     Route: 048
  4. VENLAFAXINE [Suspect]
     Indication: MOOD SWINGS
     Dosage: 300 MG 1 PO
     Route: 048

REACTIONS (12)
  - ABDOMINAL PAIN UPPER [None]
  - ANXIETY [None]
  - DIZZINESS [None]
  - FATIGUE [None]
  - FEELING ABNORMAL [None]
  - GASTROINTESTINAL DISORDER [None]
  - HEADACHE [None]
  - HYPERHIDROSIS [None]
  - MOOD SWINGS [None]
  - NAUSEA [None]
  - PRODUCT SUBSTITUTION ISSUE [None]
  - SLUGGISHNESS [None]
